FAERS Safety Report 19463049 (Version 1)
Quarter: 2021Q2

REPORT INFORMATION
  Report Type: Spontaneous
  Country: US (occurrence: US)
  Receive Date: 20210625
  Receipt Date: 20210625
  Transmission Date: 20210717
  Serious: Yes (Other)
  Sender: FDA-Public Use
  Company Number: US-AMERICAN REGENT INC-2021001623

PATIENT
  Age: 46 Year
  Sex: Male

DRUGS (20)
  1. VENOFER [Suspect]
     Active Substance: IRON SUCROSE
     Dosage: UNK UNK, SINGLE
     Route: 042
     Dates: start: 2019, end: 2019
  2. FERROUS SULFATE. [Concomitant]
     Active Substance: FERROUS SULFATE
     Indication: PRODUCT USED FOR UNKNOWN INDICATION
     Dosage: 325 MILLIGRAM, QD
     Route: 048
  3. VENOFER [Suspect]
     Active Substance: IRON SUCROSE
     Dosage: UNK UNK, SINGLE
     Route: 042
     Dates: start: 2019, end: 2019
  4. VENOFER [Suspect]
     Active Substance: IRON SUCROSE
     Dosage: 300 MILLIGRAM, SINGLE
     Route: 042
     Dates: start: 20180604, end: 20180604
  5. VENOFER [Suspect]
     Active Substance: IRON SUCROSE
     Dosage: 300 MILLIGRAM, SINGLE
     Route: 042
     Dates: start: 20180521, end: 20180521
  6. METHOTREXATE. [Concomitant]
     Active Substance: METHOTREXATE
     Indication: PRODUCT USED FOR UNKNOWN INDICATION
     Dosage: 2.5 MILLIGRAM (6 TABLETS ONCE WEEKLY)
     Route: 048
  7. VENOFER [Suspect]
     Active Substance: IRON SUCROSE
     Dosage: UNK
  8. FOSAMAX [Concomitant]
     Active Substance: ALENDRONATE SODIUM
     Indication: PRODUCT USED FOR UNKNOWN INDICATION
     Dosage: 70 MILLIGRAM ONCE WEEKLY
     Route: 048
  9. VENOFER [Suspect]
     Active Substance: IRON SUCROSE
     Dosage: 300 MILLIGRAM, SINGLE
     Route: 042
     Dates: start: 20180831, end: 20180831
  10. VENOFER [Suspect]
     Active Substance: IRON SUCROSE
     Dosage: 300 MILLIGRAM, SINGLE
     Route: 042
     Dates: start: 20181025, end: 20181025
  11. VITAMIN D3 [Concomitant]
     Active Substance: CHOLECALCIFEROL
     Indication: PRODUCT USED FOR UNKNOWN INDICATION
     Dosage: 1000 INTERNATIONAL UNIT, QD
     Route: 048
  12. VENOFER [Suspect]
     Active Substance: IRON SUCROSE
     Dosage: 300 MILLIGRAM, SINGLE
     Route: 042
     Dates: start: 20180528, end: 20180528
  13. VENOFER [Suspect]
     Active Substance: IRON SUCROSE
     Indication: IRON DEFICIENCY ANAEMIA
     Dosage: 750 MILLIGRAM, SINGLE
     Route: 042
     Dates: start: 20190604, end: 20190604
  14. VENOFER [Suspect]
     Active Substance: IRON SUCROSE
     Dosage: UNK UNK, SINGLE
     Route: 042
     Dates: start: 2019, end: 2019
  15. VENOFER [Suspect]
     Active Substance: IRON SUCROSE
     Dosage: 300 MILLIGRAM, SINGLE
     Route: 042
     Dates: start: 20180507, end: 20180507
  16. VENOFER [Suspect]
     Active Substance: IRON SUCROSE
     Dosage: 300 MILLIGRAM, SINGLE
     Route: 042
     Dates: start: 20180824, end: 20180824
  17. VENOFER [Suspect]
     Active Substance: IRON SUCROSE
     Dosage: 300 MILLIGRAM, SINGLE
     Route: 042
     Dates: start: 20180514, end: 20180514
  18. CALCIUM [Concomitant]
     Active Substance: CALCIUM
     Indication: PRODUCT USED FOR UNKNOWN INDICATION
     Dosage: 4 TABLESPOON BY MOUTH EVERY MORNING
     Route: 048
  19. VEDOLIZUMAB [Concomitant]
     Active Substance: VEDOLIZUMAB
     Indication: PRODUCT USED FOR UNKNOWN INDICATION
     Dosage: 300 MILLIGRAM EVERY 8 WEEKS
     Route: 042
  20. K?PHOS [Concomitant]
     Active Substance: POTASSIUM PHOSPHATE, MONOBASIC
     Indication: PRODUCT USED FOR UNKNOWN INDICATION
     Dosage: 500 MILLIGRAM, BID
     Route: 048

REACTIONS (11)
  - Pain [Recovering/Resolving]
  - Incorrect dose administered [Recovered/Resolved]
  - Urticaria [Unknown]
  - Muscle spasms [Unknown]
  - Peripheral swelling [Recovering/Resolving]
  - Abdominal pain [Recovering/Resolving]
  - Balance disorder [Recovering/Resolving]
  - Dizziness [Recovering/Resolving]
  - Hypophosphataemia [Not Recovered/Not Resolved]
  - Pallor [Recovering/Resolving]
  - Diarrhoea [Recovering/Resolving]

NARRATIVE: CASE EVENT DATE: 20190604
